FAERS Safety Report 12710405 (Version 3)
Quarter: 2016Q4

REPORT INFORMATION
  Report Type: Spontaneous
  Country: US (occurrence: US)
  Receive Date: 20160902
  Receipt Date: 20161013
  Transmission Date: 20170207
  Serious: No
  Sender: FDA-Public Use
  Company Number: US-PFIZER INC-2016410119

PATIENT
  Age: 51 Year
  Sex: Female

DRUGS (4)
  1. ACTHEANE [Suspect]
     Active Substance: HOMEOPATHICS
     Dosage: UNK
  2. PRILOSEC [Concomitant]
     Active Substance: OMEPRAZOLE MAGNESIUM
     Dosage: UNK
  3. PREMARIN [Suspect]
     Active Substance: ESTROGENS, CONJUGATED
     Indication: ATROPHIC VULVOVAGINITIS
     Dosage: (0.5) UNK, 2X/WEEK (TWICE A WEEK)
  4. XANAX [Concomitant]
     Active Substance: ALPRAZOLAM
     Dosage: UNK

REACTIONS (2)
  - Pollakiuria [Unknown]
  - Drug ineffective [Not Recovered/Not Resolved]
